FAERS Safety Report 7963990-6 (Version None)
Quarter: 2011Q4

REPORT INFORMATION
  Report Type: 
  Country: None (occurrence: None)
  Receive Date: 20111206
  Receipt Date: 20111123
  Transmission Date: 20120403
  Serious: Yes (Other)
  Sender: FDA-Public Use
  Company Number: 1000025818

PATIENT
  Age: 69 Year
  Sex: Male

DRUGS (3)
  1. MEMANTINE HYDROCHLORIDE [Suspect]
  2. LEVOTHYROXINE SODIUM [Concomitant]
  3. PROZAC [Concomitant]

REACTIONS (1)
  - BLINDNESS UNILATERAL [None]
